FAERS Safety Report 5093439-5 (Version None)
Quarter: 2006Q3

REPORT INFORMATION
  Report Type: 
  Country: None (occurrence: None)
  Receive Date: 20060829
  Receipt Date: 20060814
  Transmission Date: 20061208
  Serious: Yes (Life-Threatening, Hospitalization, Other)
  Sender: FDA-Public Use
  Company Number: AND_0409_2006

PATIENT
  Age: 70 Year
  Sex: Male
  Weight: 77 kg

DRUGS (5)
  1. METFORMIN HCL [Suspect]
     Dosage: 850 MG TID
  2. DICLOFENAC SODIUM [Suspect]
     Dosage: 25 MG TID PO
     Route: 048
  3. FUROSEMIDE [Suspect]
     Dosage: 40 MG QDAY
  4. ISOSORBIDE MONONITRATE [Concomitant]
  5. QUINAPRIL [Concomitant]

REACTIONS (28)
  - ABDOMINAL DISCOMFORT [None]
  - BLOOD CALCIUM DECREASED [None]
  - BLOOD GLUCOSE INCREASED [None]
  - BLOOD PHOSPHORUS INCREASED [None]
  - BLOOD SODIUM DECREASED [None]
  - BODY TEMPERATURE INCREASED [None]
  - CARDIAC FAILURE [None]
  - CONDITION AGGRAVATED [None]
  - DISORIENTATION [None]
  - DRUG CLEARANCE DECREASED [None]
  - DRUG TOXICITY [None]
  - GLASGOW COMA SCALE ABNORMAL [None]
  - HAEMODIALYSIS [None]
  - HEART RATE INCREASED [None]
  - LACTIC ACIDOSIS [None]
  - LEUKOCYTOSIS [None]
  - MALAISE [None]
  - METABOLIC ACIDOSIS [None]
  - MYALGIA [None]
  - PO2 DECREASED [None]
  - POLYURIA [None]
  - RED BLOOD CELL SEDIMENTATION RATE INCREASED [None]
  - RENAL FAILURE CHRONIC [None]
  - RESPIRATORY DISTRESS [None]
  - RESPIRATORY RATE INCREASED [None]
  - SHIFT TO THE LEFT [None]
  - SOMNOLENCE [None]
  - SPINAL OSTEOARTHRITIS [None]
